FAERS Safety Report 4841785-X (Version None)
Quarter: 2005Q4

REPORT INFORMATION
  Report Type: 
  Country: None (occurrence: None)
  Receive Date: 20051130
  Receipt Date: 20050909
  Transmission Date: 20060501
  Serious: Yes (Other)
  Sender: FDA-Public Use
  Company Number: JP-ROCHE-416962

PATIENT
  Age: 90 Year
  Sex: Female

DRUGS (3)
  1. NICARDIPINE HCL [Suspect]
     Route: 042
     Dates: start: 20000612, end: 20000612
  2. FUROSEMIDE [Concomitant]
     Route: 042
     Dates: start: 20000612, end: 20000612
  3. FRANDOL [Concomitant]
     Route: 023
     Dates: start: 20000612, end: 20000613

REACTIONS (6)
  - ATRIAL FIBRILLATION [None]
  - CARDIAC FAILURE [None]
  - CARDIO-RESPIRATORY ARREST [None]
  - CHEST DISCOMFORT [None]
  - HYPOXIA [None]
  - PULMONARY OEDEMA [None]
